FAERS Safety Report 14677439 (Version 1)
Quarter: 2018Q1

REPORT INFORMATION
  Report Type: Spontaneous
  Country: CZ (occurrence: CZ)
  Receive Date: 20180325
  Receipt Date: 20180325
  Transmission Date: 20180509
  Serious: Yes (Other)
  Sender: FDA-Public Use
  Company Number: CZ-TEVA-2018-CZ-874357

PATIENT
  Sex: Female

DRUGS (5)
  1. IBANDRONAT APOTEX [Concomitant]
     Dosage: 3 TIMES 150MG ONCE IN A MONTH
     Route: 048
  2. METFORMIN ER 500 MG [Suspect]
     Active Substance: METFORMIN HYDROCHLORIDE
     Indication: GLYCOSYLATED HAEMOGLOBIN INCREASED
     Dosage: 500 MILLIGRAM DAILY; 0-0-1
     Route: 065
  3. PRENEWEL [Concomitant]
     Active Substance: INDAPAMIDE\PERINDOPRIL ERBUMINE
     Dosage: 1-0-0
     Route: 065
  4. METYPRED [Concomitant]
     Active Substance: METHYLPREDNISOLONE
     Dosage: 1/2-0-0 EVERY OTHER DAY
     Route: 065
  5. CALCICHEW [Concomitant]
     Active Substance: CALCIUM CARBONATE
     Route: 065

REACTIONS (4)
  - Abdominal pain [Unknown]
  - Gingival swelling [Unknown]
  - Oedema peripheral [Unknown]
  - Nausea [Unknown]
